FAERS Safety Report 4886287-X (Version None)
Quarter: 2006Q1

REPORT INFORMATION
  Report Type: 
  Country: None (occurrence: None)
  Receive Date: 20060118
  Receipt Date: 20060118
  Transmission Date: 20060701
  Serious: Yes (Other)
  Sender: FDA-Public Use
  Company Number: None

PATIENT
  Age: 77 Year
  Sex: Female
  Weight: 88 kg

DRUGS (37)
  1. PALIFERMIN    6.25 MG  VIAL    AMGEN [Suspect]
     Indication: PROPHYLAXIS
     Dosage: 5.3 MG  DAILY  IV
     Route: 042
     Dates: start: 20050902, end: 20050904
  2. PALIFERMIN    6.25 MG  VIAL    AMGEN [Suspect]
     Indication: STOMATITIS
     Dosage: 5.3 MG  DAILY  IV
     Route: 042
     Dates: start: 20050902, end: 20050904
  3. PALIFERMIN    6.25 MG VIAL   AMGEN [Suspect]
     Indication: PROPHYLAXIS
     Dosage: 5.3 MG    SUN, FRI, SAT   IV
     Route: 042
     Dates: start: 20050907, end: 20050911
  4. PALIFERMIN    6.25 MG VIAL   AMGEN [Suspect]
     Indication: STOMATITIS
     Dosage: 5.3 MG    SUN, FRI, SAT   IV
     Route: 042
     Dates: start: 20050907, end: 20050911
  5. ACYCLOVIR [Concomitant]
  6. ALBUTEROL SULFATE AND IPRATROPIUM BROMIDE [Concomitant]
  7. ALLOPURINOL [Concomitant]
  8. ACETAMINOPHEN [Concomitant]
  9. APAP/DIPHENHYDRAMINE [Concomitant]
  10. BISACODYL [Concomitant]
  11. CHLORHEXIDINE GLUCONATE [Concomitant]
  12. DEXAMETHASONE TAB [Concomitant]
  13. GRANISETRON [Concomitant]
  14. DOCUSATE SODIUM [Concomitant]
  15. DIPHENHYDRAMINE [Concomitant]
  16. EPINEPHRINE [Concomitant]
  17. FLUCONAZOLE [Concomitant]
  18. FUROSEMIDE [Concomitant]
  19. GUAIFEN/D-METH [Concomitant]
  20. HYDROCORTISONE [Concomitant]
  21. HEPARIN [Concomitant]
  22. INSULIN ASPART [Concomitant]
  23. REGULAR INSULIN [Concomitant]
  24. NPH INSULIN [Concomitant]
  25. LOPERAMIDE [Concomitant]
  26. LORAZEPAM [Concomitant]
  27. MELPHALAN [Concomitant]
  28. CEPACOL [Concomitant]
  29. MYLANTA [Concomitant]
  30. OXYCODONE HCL [Concomitant]
  31. PERPHENAZINE [Concomitant]
  32. PREDNISONE [Concomitant]
  33. PROCHLORPERAZINE [Concomitant]
  34. SERTRALINE [Concomitant]
  35. LEVOTHYROXINE SODIUM [Concomitant]
  36. TEMAZEPAM [Concomitant]
  37. VANCOMYCIN [Concomitant]

REACTIONS (5)
  - ERYTHEMA [None]
  - FACE OEDEMA [None]
  - NASAL CONGESTION [None]
  - RASH [None]
  - RASH MACULAR [None]
